FAERS Safety Report 5381075-2 (Version None)
Quarter: 2007Q3

REPORT INFORMATION
  Report Type: 
  Country: None (occurrence: None)
  Receive Date: 20070706
  Receipt Date: 20070627
  Transmission Date: 20080115
  Serious: Yes (Death)
  Sender: FDA-Public Use
  Company Number: CN-GENENTECH-243872

PATIENT
  Age: 71 Year
  Sex: Male

DRUGS (5)
  1. MABTHERA [Suspect]
     Indication: LYMPHOMA
     Dosage: 600 MG, 1/WEEK
     Route: 041
     Dates: start: 20070501
  2. CYCLOPHOSPHAMIDE [Concomitant]
     Indication: LYMPHOMA
     Dates: start: 20070501
  3. DOXORUBICIN HCL [Concomitant]
     Indication: LYMPHOMA
     Dates: start: 20070501
  4. PREDNISONE TAB [Concomitant]
     Indication: LYMPHOMA
     Dates: start: 20070501
  5. VINCRISTINE [Concomitant]
     Indication: LYMPHOMA
     Dates: start: 20070501

REACTIONS (2)
  - PULMONARY FIBROSIS [None]
  - RESPIRATORY FAILURE [None]
